FAERS Safety Report 11833192 (Version 1)
Quarter: 2015Q4

REPORT INFORMATION
  Report Type: Spontaneous
  Country: US (occurrence: US)
  Receive Date: 20151214
  Receipt Date: 20151214
  Transmission Date: 20160305
  Serious: No
  Sender: FDA-Public Use
  Company Number: US-PERRIGO-14US012372

PATIENT
  Age: 56 Year
  Sex: Female
  Weight: 68.27 kg

DRUGS (3)
  1. MINOXIDIL. [Suspect]
     Active Substance: MINOXIDIL
     Dosage: 1 ML, SINGLE IN THE MORNING
     Route: 061
     Dates: start: 20141202, end: 20141202
  2. MINOXIDIL. [Suspect]
     Active Substance: MINOXIDIL
     Indication: ALOPECIA
     Dosage: 1 ML, SINGLE IN THE EVENING
     Route: 061
     Dates: start: 20141201, end: 20141201
  3. AMLODIPINE [Concomitant]
     Active Substance: AMLODIPINE BESYLATE
     Indication: HYPERTENSION
     Dosage: 10 MG, QD
     Route: 048
     Dates: start: 2012

REACTIONS (7)
  - Alopecia [Recovering/Resolving]
  - Application site pain [Recovering/Resolving]
  - Application site exfoliation [Recovering/Resolving]
  - Application site rash [Recovering/Resolving]
  - Sinusitis [Recovered/Resolved]
  - Application site pruritus [Recovering/Resolving]
  - Application site irritation [Recovering/Resolving]

NARRATIVE: CASE EVENT DATE: 20141202
